FAERS Safety Report 5269636-2 (Version None)
Quarter: 2007Q1

REPORT INFORMATION
  Report Type: 
  Country: None (occurrence: None)
  Receive Date: 20070320
  Receipt Date: 20070308
  Transmission Date: 20070707
  Serious: Yes (Other)
  Sender: FDA-Public Use
  Company Number: PHEH2006US01244

PATIENT
  Age: 66 Year
  Sex: Male
  Weight: 158.73 kg

DRUGS (15)
  1. AREDIA [Suspect]
     Dosage: 90MG QM
     Route: 042
     Dates: start: 20030429, end: 20050101
  2. AREDIA [Suspect]
     Dosage: 60MG QM
     Dates: start: 20050204, end: 20050801
  3. THALOMID [Concomitant]
     Dosage: 50MG HS
     Route: 048
  4. DECADRON #1 [Concomitant]
  5. CRESTOR [Concomitant]
     Dosage: 10 MG, UNK
  6. CRESTOR [Concomitant]
     Dosage: 5 MG, UNK
     Dates: start: 20050712
  7. LISINOPRIL [Concomitant]
     Dosage: 20 MG, QD
     Dates: start: 20030101
  8. LISINOPRIL [Concomitant]
     Dosage: 20 MG, QD
  9. LISINOPRIL W/HYDROCHLOROTHIAZIDE [Concomitant]
     Dosage: 20MG/25MG QD
     Route: 048
     Dates: start: 20030101
  10. KLOR-CON [Concomitant]
     Dosage: 20 MEQ, QD
     Route: 048
  11. IPRATROPIUM BROMIDE W/SALBUTAMOL [Concomitant]
  12. THEO-DUR [Concomitant]
     Dosage: 300 MG, BID
     Route: 048
  13. ZESTRIL [Concomitant]
  14. NIACIN [Concomitant]
  15. HEMOCYTE TABLET [Concomitant]
     Indication: ANAEMIA

REACTIONS (32)
  - ANAEMIA [None]
  - AZOTAEMIA [None]
  - BLOOD CREATININE INCREASED [None]
  - BLOOD GLUCOSE INCREASED [None]
  - BONE DISORDER [None]
  - BONE EROSION [None]
  - CATARACT OPERATION [None]
  - DIABETES MELLITUS [None]
  - EAR OPERATION [None]
  - GINGIVAL EROSION [None]
  - GOUT [None]
  - HAEMOGLOBIN DECREASED [None]
  - HYPOTENSION [None]
  - LYMPH NODE PAIN [None]
  - LYMPHADENOPATHY [None]
  - MYALGIA [None]
  - OEDEMA [None]
  - ORAL PAIN [None]
  - ORAL SOFT TISSUE DISORDER [None]
  - OSTEONECROSIS [None]
  - PAIN IN EXTREMITY [None]
  - PARAESTHESIA [None]
  - RED BLOOD CELL SEDIMENTATION RATE INCREASED [None]
  - RENAL FAILURE CHRONIC [None]
  - SKIN LESION [None]
  - SOFT TISSUE DISORDER [None]
  - SQUAMOUS CELL CARCINOMA [None]
  - TOOTH DISORDER [None]
  - TOOTH EXTRACTION [None]
  - WEIGHT DECREASED [None]
  - WEIGHT LOSS DIET [None]
  - WOUND DRAINAGE [None]
